FAERS Safety Report 4724226-2 (Version None)
Quarter: 2005Q3

REPORT INFORMATION
  Report Type: 
  Country: None (occurrence: None)
  Receive Date: 20050726
  Receipt Date: 20050715
  Transmission Date: 20060218
  Serious: Yes (Hospitalization)
  Sender: FDA-Public Use
  Company Number: PHBS2005CH10150

PATIENT
  Age: 67 Year
  Sex: Male

DRUGS (6)
  1. VOLTAREN [Suspect]
  2. PROCAINE BENZYLPENICILLIN [Suspect]
     Dosage: 1 INJECTION/WEEK
     Dates: start: 20050301
  3. PIPERACILLIN [Suspect]
     Dosage: 2.4 MIO U.I./WEEK
     Dates: start: 20050301
  4. DEROXAT [Concomitant]
     Dosage: 20 MG/DAY
     Route: 048
  5. LAMISIL [Concomitant]
     Dosage: UNK, UNK
     Route: 061
  6. ASPIRIN [Suspect]

REACTIONS (4)
  - LEUKOPENIA [None]
  - NASOPHARYNGITIS [None]
  - NEUTROPENIA [None]
  - PHARYNGOLARYNGEAL PAIN [None]
